FAERS Safety Report 5889212-8 (Version None)
Quarter: 2008Q3

REPORT INFORMATION
  Report Type: 
  Country: None (occurrence: None)
  Receive Date: 20080919
  Receipt Date: 20080916
  Transmission Date: 20090109
  Serious: Yes (Hospitalization)
  Sender: FDA-Public Use
  Company Number: BE-BRISTOL-MYERS SQUIBB COMPANY-14053227

PATIENT
  Age: 56 Year
  Sex: Male

DRUGS (3)
  1. ABATACEPT [Suspect]
     Indication: CROHN'S DISEASE
     Dosage: 24OCT07-19DEC07, IV, NO OF COURSES 4.
     Route: 042
     Dates: start: 20080116, end: 20080124
  2. MEDROL [Concomitant]
     Dates: start: 20070926, end: 20080226
  3. EMTHEXATE [Concomitant]
     Dates: start: 20020108, end: 20080207

REACTIONS (1)
  - CROHN'S DISEASE [None]
